FAERS Safety Report 7631741-0 (Version None)
Quarter: 2011Q3

REPORT INFORMATION
  Report Type: 
  Country: None (occurrence: None)
  Receive Date: 20110725
  Receipt Date: 20110311
  Transmission Date: 20111222
  Serious: No
  Sender: FDA-Public Use
  Company Number: US-BRISTOL-MYERS SQUIBB COMPANY-15575137

PATIENT
  Sex: Male

DRUGS (2)
  1. COUMADIN [Suspect]
  2. TRAMADOL HCL [Suspect]
     Indication: PAIN

REACTIONS (4)
  - BACK PAIN [None]
  - HEART RATE IRREGULAR [None]
  - BURSITIS [None]
  - SOMNOLENCE [None]
